FAERS Safety Report 8070107-9 (Version None)
Quarter: 2011Q4

REPORT INFORMATION
  Report Type: 
  Country: None (occurrence: None)
  Receive Date: 20111221
  Receipt Date: 20110830
  Transmission Date: 20120403
  Serious: Yes (Hospitalization, Other)
  Sender: FDA-Public Use
  Company Number: PHEH2011US02490

PATIENT

DRUGS (1)
  1. EXJADE [Suspect]
     Dosage: UNK

REACTIONS (2)
  - HEPATOTOXICITY [None]
  - HEPATIC FUNCTION ABNORMAL [None]
